FAERS Safety Report 18137162 (Version 1)
Quarter: 2020Q3

REPORT INFORMATION
  Report Type: Spontaneous
  Country: US (occurrence: US)
  Receive Date: 20200811
  Receipt Date: 20200811
  Transmission Date: 20201103
  Serious: No
  Sender: FDA-Public Use
  Company Number: US-STALLERGENES SAS-2088485

PATIENT
  Age: 40 Year
  Sex: Female

DRUGS (11)
  1. VERAPAMIL [Concomitant]
     Active Substance: VERAPAMIL HYDROCHLORIDE
  2. ORALAIR [Suspect]
     Active Substance: ANTHOXANTHUM ODORATUM POLLEN\DACTYLIS GLOMERATA POLLEN\LOLIUM PERENNE POLLEN\PHLEUM PRATENSE POLLEN\POA PRATENSIS POLLEN
     Indication: ESSENTIAL HYPERTENSION
     Route: 060
     Dates: start: 20200330
  3. AZELASTINE HYDROCHLORIDE. [Concomitant]
     Active Substance: AZELASTINE HYDROCHLORIDE
     Route: 045
  4. AZITHROMYCIN ANHYDROUS. [Concomitant]
     Active Substance: AZITHROMYCIN ANHYDROUS
  5. EPIPEN [Concomitant]
     Active Substance: EPINEPHRINE
     Route: 030
  6. NORLYDA [Concomitant]
     Active Substance: NORETHINDRONE
     Route: 048
  7. JUNEL FE 28 DAY [Concomitant]
     Active Substance: ETHINYL ESTRADIOL\NORETHINDRONE ACETATE
     Route: 048
  8. AMOXICILLIN AND CLAVULANATE POTASSIUM [Concomitant]
     Active Substance: AMOXICILLIN\CLAVULANATE POTASSIUM
     Route: 048
  9. VALACYCLOVIR [Concomitant]
     Active Substance: VALACYCLOVIR HYDROCHLORIDE
     Route: 048
  10. BENZONATATE. [Concomitant]
     Active Substance: BENZONATATE
  11. METOPROLOL SUCCINATE. [Concomitant]
     Active Substance: METOPROLOL SUCCINATE

REACTIONS (4)
  - Throat irritation [Recovered/Resolved]
  - Ear pain [Recovered/Resolved]
  - Off label use [Recovered/Resolved]
  - Hypersensitivity [Recovered/Resolved]
